FAERS Safety Report 20915812 (Version 1)
Quarter: 2022Q2

REPORT INFORMATION
  Report Type: Spontaneous
  Country: US (occurrence: US)
  Receive Date: 20220604
  Receipt Date: 20220604
  Transmission Date: 20220720
  Serious: No
  Sender: FDA-Public Use
  Company Number: US-SA-SAC20220530001805

PATIENT
  Age: 47 Year
  Sex: Female

DRUGS (4)
  1. AUBAGIO [Suspect]
     Active Substance: TERIFLUNOMIDE
     Indication: Multiple sclerosis
     Dosage: 14 MG, QD
     Route: 048
     Dates: start: 20201006
  2. MYRBETRIQ [Concomitant]
     Active Substance: MIRABEGRON
     Dosage: UNK
  3. SOLIFENACIN [Concomitant]
     Active Substance: SOLIFENACIN
     Dosage: UNK
  4. GEMTESA [Concomitant]
     Active Substance: VIBEGRON
     Dosage: 75 MG

REACTIONS (3)
  - Trichorrhexis [Not Recovered/Not Resolved]
  - Onychoclasis [Not Recovered/Not Resolved]
  - Nail growth abnormal [Not Recovered/Not Resolved]
